FAERS Safety Report 20132629 (Version 1)
Quarter: 2021Q4

REPORT INFORMATION
  Report Type: Report from Study
  Country: EG (occurrence: EG)
  Receive Date: 20211130
  Receipt Date: 20211130
  Transmission Date: 20220303
  Serious: Yes (Hospitalization, Other)
  Sender: FDA-Public Use
  Company Number: EG-NOVARTISPH-NVSC2021EG269349

PATIENT
  Age: 35 Year
  Sex: Female

DRUGS (7)
  1. GILENYA [Suspect]
     Active Substance: FINGOLIMOD HYDROCHLORIDE
     Indication: Multiple sclerosis
     Dosage: 0.5 MG, QD
     Route: 048
     Dates: start: 20210710
  2. TEGRETOL [Concomitant]
     Active Substance: CARBAMAZEPINE
     Indication: Hypoaesthesia
     Dosage: 200 CR, (THREE TAB), QD
     Route: 048
     Dates: end: 20211106
  3. TEGRETOL [Concomitant]
     Active Substance: CARBAMAZEPINE
     Dosage: 400 CR, (HALF TABLET), BID
     Route: 048
     Dates: start: 20211106
  4. MOBITIL [Concomitant]
     Indication: Analgesic therapy
     Dosage: 1 DF, QD
     Route: 048
     Dates: start: 20211106
  5. MOBITIL [Concomitant]
     Indication: Antiinflammatory therapy
  6. .ALPHA.-LIPOIC ACID [Concomitant]
     Active Substance: .ALPHA.-LIPOIC ACID
     Indication: Optic neuritis
     Dosage: 2 DF, QD
     Route: 048
     Dates: start: 20211106
  7. SEROQUEL [Concomitant]
     Active Substance: QUETIAPINE FUMARATE
     Indication: Product used for unknown indication
     Dosage: UNK
     Route: 048
     Dates: start: 20211106

REACTIONS (3)
  - Gait disturbance [Recovered/Resolved]
  - Accident [Recovered/Resolved]
  - Vision blurred [Not Recovered/Not Resolved]

NARRATIVE: CASE EVENT DATE: 20210917
